FAERS Safety Report 23149941 (Version 1)
Quarter: 2023Q4

REPORT INFORMATION
  Report Type: Spontaneous
  Country: US (occurrence: US)
  Receive Date: 20231106
  Receipt Date: 20231106
  Transmission Date: 20240110
  Serious: Yes (Other)
  Sender: FDA-Public Use
  Company Number: US-BRISTOL-MYERS SQUIBB COMPANY-2023-155860

PATIENT
  Age: 6 Year
  Sex: Male

DRUGS (4)
  1. NIVOLUMAB [Suspect]
     Active Substance: NIVOLUMAB
     Indication: Glioblastoma
     Dosage: 3 MG/KG (Q2 WEEKS) FOR A TOTAL OF FOUR DOSES
  2. NIVOLUMAB [Suspect]
     Active Substance: NIVOLUMAB
     Indication: Mismatch repair cancer syndrome
     Dosage: SCHEDULED MONTHLY (AT 6 MG/KG) (TO DECREASE APPOINTMENT FREQUENCY) / 6MG/KG EVERY FOUR WEEKS
  3. LOMUSTINE [Suspect]
     Active Substance: LOMUSTINE
     Indication: Glioblastoma
     Dosage: SIX CYCLES OF CCNU
  4. LOMUSTINE [Suspect]
     Active Substance: LOMUSTINE
     Indication: Mismatch repair cancer syndrome

REACTIONS (4)
  - Thrombocytopenia [Recovered/Resolved]
  - Vitiligo [Unknown]
  - Contusion [Unknown]
  - Off label use [Unknown]
